FAERS Safety Report 16641278 (Version 1)
Quarter: 2019Q3

REPORT INFORMATION
  Report Type: Spontaneous
  Country: US (occurrence: US)
  Receive Date: 20190614
  Receipt Date: 20190614
  Transmission Date: 20191004
  Serious: Yes (Hospitalization)
  Sender: FDA-Public Use
  Company Number: None

PATIENT
  Age: 19 Year
  Sex: Male
  Weight: 53 kg

DRUGS (1)
  1. DEXAMETHASONE. [Suspect]
     Active Substance: DEXAMETHASONE
     Dates: start: 20190603

REACTIONS (4)
  - Musculoskeletal pain [None]
  - Back pain [None]
  - Flank pain [None]
  - Muscle strain [None]

NARRATIVE: CASE EVENT DATE: 20190604
